FAERS Safety Report 22250985 (Version 1)
Quarter: 2023Q2

REPORT INFORMATION
  Report Type: Report from Study
  Country: US (occurrence: None)
  Receive Date: 20230425
  Receipt Date: 20230425
  Transmission Date: 20230722
  Serious: Yes (Other)
  Sender: FDA-Public Use
  Company Number: US-Eisai Medical Research-EC-2023-136588

PATIENT
  Age: 84 Year
  Sex: Female

DRUGS (1)
  1. LENVIMA [Suspect]
     Active Substance: LENVATINIB
     Indication: Endometrial cancer
     Route: 048
     Dates: start: 20230316, end: 202304

REACTIONS (17)
  - Atrial fibrillation [Unknown]
  - Amnesia [Not Recovered/Not Resolved]
  - Blood cholesterol increased [Not Recovered/Not Resolved]
  - Hypertension [Recovering/Resolving]
  - Feeding disorder [Not Recovered/Not Resolved]
  - Heart rate increased [Not Recovered/Not Resolved]
  - Taste disorder [Not Recovered/Not Resolved]
  - Somnolence [Not Recovered/Not Resolved]
  - Rash [Recovering/Resolving]
  - Fatigue [Recovering/Resolving]
  - Dyspepsia [Unknown]
  - Decreased appetite [Recovering/Resolving]
  - Fall [Unknown]
  - Confusional state [Unknown]
  - Eye infection [Recovering/Resolving]
  - Proteinuria [Unknown]
  - Thyroid function test abnormal [Unknown]

NARRATIVE: CASE EVENT DATE: 20230101
